FAERS Safety Report 8233569-X (Version None)
Quarter: 2012Q1

REPORT INFORMATION
  Report Type: 
  Country: None (occurrence: None)
  Receive Date: 20120326
  Receipt Date: 20120314
  Transmission Date: 20120608
  Serious: Yes (Hospitalization, Other)
  Sender: FDA-Public Use
  Company Number: PHEH2012US005663

PATIENT
  Sex: Female

DRUGS (7)
  1. ANASTROZOLE [Concomitant]
     Dosage: 1 MG, UNK
  2. EXJADE [Suspect]
     Dosage: 125 MG, DAILY
     Route: 048
  3. PRAVASTATIN [Concomitant]
     Dosage: 10 MG, UNK
  4. VITAMIN D [Concomitant]
  5. OSCAL 500-D [Concomitant]
  6. NORVASC [Concomitant]
     Dosage: 2.5 MG, UNK
  7. NEXIUM [Concomitant]
     Dosage: 40 MG, UNK

REACTIONS (2)
  - HAEMORRHAGE [None]
  - THROMBOSIS [None]
